FAERS Safety Report 5029704-7 (Version None)
Quarter: 2006Q2

REPORT INFORMATION
  Report Type: 
  Country: None (occurrence: None)
  Receive Date: 20060504
  Receipt Date: 20060123
  Transmission Date: 20061013
  Serious: No
  Sender: FDA-Public Use
  Company Number: 200610437BWH

PATIENT
  Sex: Male

DRUGS (2)
  1. LEVITRA [Suspect]
     Dosage: SEE IMAGE
     Route: 048
  2. ALCOHOL [Concomitant]

REACTIONS (2)
  - DRUG EFFECT DECREASED [None]
  - STOMACH DISCOMFORT [None]
